FAERS Safety Report 4714773-1 (Version None)
Quarter: 2005Q3

REPORT INFORMATION
  Report Type: 
  Country: None (occurrence: None)
  Receive Date: 20050715
  Receipt Date: 20050706
  Transmission Date: 20060218
  Serious: Yes (Hospitalization)
  Sender: FDA-Public Use
  Company Number: US-KINGPHARMUSA00001-K200500912

PATIENT
  Age: 70 Year
  Sex: Male

DRUGS (6)
  1. ALTACE [Suspect]
     Route: 048
  2. LASIX [Suspect]
  3. EPREX [Suspect]
  4. OMEPRAZOLE [Suspect]
     Route: 048
  5. SOPROL [Suspect]
     Route: 048
  6. IRESSA [Suspect]
     Dosage: 250 MG, QD
     Route: 048

REACTIONS (2)
  - LEUKOCYTOCLASTIC VASCULITIS [None]
  - PURPURA [None]
